FAERS Safety Report 5509952-X (Version None)
Quarter: 2007Q4

REPORT INFORMATION
  Report Type: 
  Country: None (occurrence: None)
  Receive Date: 20071107
  Receipt Date: 20071107
  Transmission Date: 20080405
  Serious: Yes (Hospitalization, Other)
  Sender: FDA-Public Use
  Company Number: None

PATIENT
  Sex: Female
  Weight: 70.7611 kg

DRUGS (1)
  1. RAPTIVA [Suspect]
     Indication: DERMATITIS
     Dosage: .7ML BASED UPON WT. WEEKLY IM
     Route: 030

REACTIONS (9)
  - ALOPECIA [None]
  - CHILLS [None]
  - DERMATITIS [None]
  - HYPERHIDROSIS [None]
  - INFLUENZA [None]
  - OEDEMA PERIPHERAL [None]
  - SKIN EXFOLIATION [None]
  - STAPHYLOCOCCAL INFECTION [None]
  - THROMBOSIS [None]
